FAERS Safety Report 22761415 (Version 3)
Quarter: 2024Q4

REPORT INFORMATION
  Report Type: Spontaneous
  Country: US (occurrence: US)
  Receive Date: 20230728
  Receipt Date: 20241113
  Transmission Date: 20250115
  Serious: No
  Sender: PFIZER
  Company Number: US-PFIZER INC-PV202300127935

PATIENT
  Age: 78 Year
  Sex: Female

DRUGS (1)
  1. CIPROFLOXACIN [Suspect]
     Active Substance: CIPROFLOXACIN
     Dosage: UNK

REACTIONS (4)
  - Lip blister [Unknown]
  - Hypoaesthesia [Unknown]
  - Myalgia [Unknown]
  - Hypersensitivity [Unknown]
